FAERS Safety Report 11505978 (Version 1)
Quarter: 2015Q3

REPORT INFORMATION
  Report Type: Spontaneous
  Country: US (occurrence: US)
  Receive Date: 20150915
  Receipt Date: 20150915
  Transmission Date: 20151125
  Serious: No
  Sender: FDA-Public Use
  Company Number: US-ROCHE-788183

PATIENT
  Sex: Male

DRUGS (8)
  1. PRISTIQ EXTENDED RELEASE [Concomitant]
     Active Substance: DESVENLAFAXINE SUCCINATE
     Route: 065
  2. XANAX [Concomitant]
     Active Substance: ALPRAZOLAM
     Dosage: DRUG REPORTED AS ^ZANAX^
     Route: 065
  3. OXYCODONE [Concomitant]
     Active Substance: OXYCODONE
     Route: 065
  4. IBUPROFEN. [Concomitant]
     Active Substance: IBUPROFEN
     Route: 065
  5. PEGASYS [Suspect]
     Active Substance: PEGINTERFERON ALFA-2A
     Indication: CHRONIC HEPATITIS C
     Dosage: PRE-FILLED SYRINGE
     Route: 065
  6. DEPAKOTE [Concomitant]
     Active Substance: DIVALPROEX SODIUM
     Route: 065
  7. METHADONE [Concomitant]
     Active Substance: METHADONE HYDROCHLORIDE
     Route: 065
  8. COPEGUS [Suspect]
     Active Substance: RIBAVIRIN
     Indication: CHRONIC HEPATITIS C
     Route: 065

REACTIONS (3)
  - Headache [Unknown]
  - Pyrexia [Unknown]
  - Nausea [Unknown]
